FAERS Safety Report 4569171-0 (Version None)
Quarter: 2005Q1

REPORT INFORMATION
  Report Type: 
  Country: None (occurrence: None)
  Receive Date: 20050203
  Receipt Date: 20050111
  Transmission Date: 20050727
  Serious: Yes (Life-Threatening, Hospitalization)
  Sender: FDA-Public Use
  Company Number: CA-AMGEN-US107274

PATIENT
  Sex: Male
  Weight: 103 kg

DRUGS (3)
  1. ENBREL [Suspect]
     Indication: PSORIATIC ARTHROPATHY
     Dates: start: 20040601, end: 20050107
  2. ENBREL [Suspect]
     Indication: PSORIASIS
     Dates: start: 20050106
  3. ADALAT [Concomitant]
     Dates: start: 20040101, end: 20040927

REACTIONS (5)
  - AORTIC DISSECTION [None]
  - CONDITION AGGRAVATED [None]
  - HYPERTENSION [None]
  - MYOCARDIAL INFARCTION [None]
  - PSORIASIS [None]
